FAERS Safety Report 23132300 (Version 2)
Quarter: 2024Q1

REPORT INFORMATION
  Report Type: Report from Study
  Country: US (occurrence: US)
  Receive Date: 20231101
  Receipt Date: 20240131
  Transmission Date: 20240410
  Serious: Yes (Hospitalization, Other)
  Sender: FDA-Public Use
  Company Number: US-ABBVIE-5473473

PATIENT
  Age: 77 Year
  Sex: Female

DRUGS (1)
  1. HUMIRA [Suspect]
     Active Substance: ADALIMUMAB
     Indication: Product used for unknown indication
     Dosage: CITRATE FREE?FORM STRENGTH:40 MILLIGRAM
     Route: 058
     Dates: start: 20010505

REACTIONS (5)
  - Intraocular lens implant [Not Recovered/Not Resolved]
  - Wrist fracture [Recovering/Resolving]
  - Surgical failure [Not Recovered/Not Resolved]
  - Fall [Unknown]
  - Blindness unilateral [Unknown]

NARRATIVE: CASE EVENT DATE: 20230803
